FAERS Safety Report 14396411 (Version 1)
Quarter: 2018Q1

REPORT INFORMATION
  Report Type: Spontaneous
  Country: None (occurrence: US)
  Receive Date: 20180116
  Receipt Date: 20180116
  Transmission Date: 20180509
  Serious: No
  Sender: FDA-Public Use
  Company Number: US-ALLERGAN-1727584US

PATIENT
  Sex: Female

DRUGS (18)
  1. PROCHLORPERAZINE. [Concomitant]
     Active Substance: PROCHLORPERAZINE
  2. LASTACAFT [Concomitant]
     Active Substance: ALCAFTADINE
  3. MIGRANAL [Concomitant]
     Active Substance: DIHYDROERGOTAMINE MESYLATE
  4. MELATONIN [Concomitant]
     Active Substance: MELATONIN
  5. BIOTIN [Concomitant]
     Active Substance: BIOTIN
  6. TYLENOL WITH CODEINE [Concomitant]
     Active Substance: ACETAMINOPHEN\CODEINE PHOSPHATE
  7. FLONASE [Concomitant]
     Active Substance: FLUTICASONE PROPIONATE
  8. RESTASIS [Concomitant]
     Active Substance: CYCLOSPORINE
  9. BONVIVA [Concomitant]
     Active Substance: IBANDRONATE SODIUM
  10. BOTOX [Suspect]
     Active Substance: ONABOTULINUMTOXINA
     Indication: MIGRAINE
     Dosage: 155 UNITS, SINGLE
     Route: 030
     Dates: start: 20170328, end: 20170328
  11. CLINDAMYCIN. [Concomitant]
     Active Substance: CLINDAMYCIN
  12. CALCIPOTRIENE. [Concomitant]
     Active Substance: CALCIPOTRIENE
  13. CALCIUM 500+D [Concomitant]
     Active Substance: CALCIUM\VITAMIN D
  14. VOLTAREN [Concomitant]
     Active Substance: DICLOFENAC SODIUM
  15. ALREX [Concomitant]
     Active Substance: LOTEPREDNOL ETABONATE
  16. LESCOL [Concomitant]
     Active Substance: FLUVASTATIN SODIUM
  17. TOPIRAMATE. [Concomitant]
     Active Substance: TOPIRAMATE
  18. LEVOTHYROXINE. [Concomitant]
     Active Substance: LEVOTHYROXINE

REACTIONS (2)
  - Injection site infection [Recovering/Resolving]
  - Injection site rash [Recovering/Resolving]

NARRATIVE: CASE EVENT DATE: 2017
